FAERS Safety Report 5676940-2 (Version None)
Quarter: 2008Q1

REPORT INFORMATION
  Report Type: 
  Country: None (occurrence: None)
  Receive Date: 20080324
  Receipt Date: 20080317
  Transmission Date: 20080703
  Serious: Yes (Death, Hospitalization, Other)
  Sender: FDA-Public Use
  Company Number: US-ROCHE-495809

PATIENT
  Age: 16 Year
  Sex: Male
  Weight: 75.8 kg

DRUGS (12)
  1. ACCUTANE [Suspect]
     Indication: ACNE
     Route: 048
     Dates: start: 20000204, end: 20000901
  2. ACCUTANE [Suspect]
     Route: 048
     Dates: start: 20010314, end: 20010611
  3. ACCUTANE [Suspect]
     Route: 048
     Dates: start: 20010611, end: 20010901
  4. ACCUTANE [Suspect]
     Route: 048
     Dates: start: 20020307, end: 20020311
  5. ACCUTANE [Suspect]
     Route: 048
     Dates: start: 20020601, end: 20030401
  6. AMNESTEEM [Concomitant]
     Indication: ACNE
     Dates: start: 20030405, end: 20050201
  7. CLEOCIN T [Concomitant]
     Indication: DRY SKIN
     Route: 061
     Dates: start: 20021121, end: 20030401
  8. LEXAPRO [Concomitant]
     Indication: DEPRESSION
     Dates: start: 20041123, end: 20041201
  9. PROZAC [Concomitant]
     Indication: DEPRESSION
     Dates: start: 20041208, end: 20041201
  10. EFFEXOR [Concomitant]
     Indication: DEPRESSION
     Dates: start: 20050101, end: 20050201
  11. M-M-R II [Concomitant]
     Dates: start: 19851126, end: 20020830
  12. METRONIDAZOLE HCL [Concomitant]
     Indication: DRY SKIN
     Route: 061
     Dates: start: 20010402

REACTIONS (16)
  - AFFECT LABILITY [None]
  - AGGRESSION [None]
  - AGITATION [None]
  - ANGER [None]
  - AUTOMATISM [None]
  - BLOOD CREATINE PHOSPHOKINASE INCREASED [None]
  - CHAPPED LIPS [None]
  - COMPLETED SUICIDE [None]
  - DELIRIUM [None]
  - DISCOMFORT [None]
  - DRY SKIN [None]
  - GROIN PAIN [None]
  - IMPULSE-CONTROL DISORDER [None]
  - MAJOR DEPRESSION [None]
  - PSYCHOTIC DISORDER [None]
  - SUICIDAL IDEATION [None]
